FAERS Safety Report 16542872 (Version 6)
Quarter: 2019Q4

REPORT INFORMATION
  Report Type: Report from Study
  Country: US (occurrence: US)
  Receive Date: 20190709
  Receipt Date: 20191218
  Transmission Date: 20200122
  Serious: Yes (Death, Life-Threatening, Other)
  Sender: FDA-Public Use
  Company Number: PHHY2019US153450

PATIENT
  Age: 13 Year
  Sex: Male

DRUGS (3)
  1. KYMRIAH [Suspect]
     Active Substance: TISAGENLECLEUCEL
     Indication: B-CELL TYPE ACUTE LEUKAEMIA
     Dosage: UNK, ONCE/SINGLE
     Route: 041
     Dates: start: 2018
  2. CYCLOPHOSPHAMIDE. [Concomitant]
     Active Substance: CYCLOPHOSPHAMIDE
     Indication: CHEMOTHERAPY
     Route: 065
  3. FLUDARABINE [Concomitant]
     Active Substance: FLUDARABINE PHOSPHATE
     Indication: CHEMOTHERAPY
     Route: 065

REACTIONS (31)
  - Pulmonary toxicity [Not Recovered/Not Resolved]
  - Nephropathy toxic [Unknown]
  - Blood bilirubin increased [Unknown]
  - Atelectasis [Unknown]
  - BK virus infection [Unknown]
  - Hemiparesis [Unknown]
  - Paraparesis [Unknown]
  - Headache [Unknown]
  - B-cell type acute leukaemia [Fatal]
  - Malignant neoplasm progression [Fatal]
  - Hepatotoxicity [Not Recovered/Not Resolved]
  - Aphasia [Unknown]
  - Stenotrophomonas infection [Unknown]
  - Cellulitis [Unknown]
  - Staphylococcal infection [Unknown]
  - Haemoglobin decreased [Unknown]
  - Haematocrit decreased [Unknown]
  - Seizure [Unknown]
  - Cytokine release syndrome [Recovered/Resolved]
  - Pyrexia [Unknown]
  - Cytopenia [Unknown]
  - Vomiting [Unknown]
  - Adenovirus infection [Unknown]
  - Pulmonary oedema [Unknown]
  - Neurotoxicity [Recovered/Resolved]
  - Depressed level of consciousness [Unknown]
  - Hypoxia [Unknown]
  - Pseudomonas infection [Unknown]
  - Diarrhoea [Unknown]
  - Motor dysfunction [Unknown]
  - Human herpesvirus 6 infection [Unknown]
